FAERS Safety Report 9349165 (Version 1)
Quarter: 2013Q2

REPORT INFORMATION
  Report Type: Spontaneous
  Country: BR (occurrence: BR)
  Receive Date: 20130614
  Receipt Date: 20130614
  Transmission Date: 20140414
  Serious: Yes (Hospitalization)
  Sender: FDA-Public Use
  Company Number: BR-ELI_LILLY_AND_COMPANY-BR201306000949

PATIENT
  Age: 26 Year
  Sex: Female
  Weight: 104 kg

DRUGS (5)
  1. HUMULIN REGULAR [Suspect]
     Indication: TYPE 2 DIABETES MELLITUS
     Dosage: 4 IU, TID
     Route: 058
     Dates: start: 201304
  2. HUMULIN REGULAR [Suspect]
     Dosage: 4 IU, TID
     Route: 058
     Dates: start: 20130517, end: 20130602
  3. NOVOLIN N [Concomitant]
     Dosage: 28 IU, EACH MORNING
     Route: 065
  4. NOVOLIN N [Concomitant]
     Dosage: 12 IU, QD
     Route: 065
  5. NOVOLIN N [Concomitant]
     Dosage: 12 IU, EACH EVENING
     Route: 065

REACTIONS (4)
  - Blood glucose increased [Not Recovered/Not Resolved]
  - Exposure during pregnancy [Unknown]
  - Inappropriate schedule of drug administration [Unknown]
  - Pain [Unknown]
